FAERS Safety Report 25135918 (Version 1)
Quarter: 2025Q1

REPORT INFORMATION
  Report Type: Spontaneous
  Country: US (occurrence: US)
  Receive Date: 20250328
  Receipt Date: 20250328
  Transmission Date: 20250408
  Serious: Yes (Other)
  Sender: AMGEN
  Company Number: US-AMGEN-USASP2025060149

PATIENT
  Sex: Male

DRUGS (1)
  1. KANJINTI [Suspect]
     Active Substance: TRASTUZUMAB-ANNS
     Indication: Breast cancer
     Route: 065

REACTIONS (3)
  - Heart failure with preserved ejection fraction [Unknown]
  - Mitral valve incompetence [Unknown]
  - Atrial enlargement [Unknown]
